FAERS Safety Report 23693030 (Version 1)
Quarter: 2024Q1

REPORT INFORMATION
  Report Type: Spontaneous
  Country: US (occurrence: None)
  Receive Date: 20240330
  Receipt Date: 20240330
  Transmission Date: 20240410
  Serious: No
  Sender: FDA-Public Use
  Company Number: None

PATIENT
  Age: 44 Year
  Sex: Female
  Weight: 76.5 kg

DRUGS (13)
  1. OSELTAMIVIR PHOSPHATE [Suspect]
     Active Substance: OSELTAMIVIR PHOSPHATE
     Indication: Influenza
     Dosage: 2 CAPSULES TWICE A DAY ORAL?
     Route: 048
  2. toporol [Concomitant]
  3. singular [Concomitant]
  4. ALLEGRA [Concomitant]
  5. GABAPENTIN [Concomitant]
  6. metrocarbate [Concomitant]
  7. BENZONATATE [Concomitant]
  8. pro air inhaler [Concomitant]
  9. TAMIFLU [Concomitant]
  10. NUCALA [Concomitant]
  11. allergra [Concomitant]
  12. VITAMIN C [Concomitant]
     Active Substance: ASCORBIC ACID
  13. GABAPENTIN [Suspect]
     Active Substance: GABAPENTIN
     Indication: Neuralgia

REACTIONS (3)
  - Tremor [None]
  - Lethargy [None]
  - Dizziness [None]

NARRATIVE: CASE EVENT DATE: 20240329
